FAERS Safety Report 24277694 (Version 1)
Quarter: 2024Q3

REPORT INFORMATION
  Report Type: Spontaneous
  Country: NL (occurrence: NL)
  Receive Date: 20240903
  Receipt Date: 20240903
  Transmission Date: 20241017
  Serious: Yes (Life-Threatening)
  Sender: MYLAN
  Company Number: None

PATIENT
  Age: 56 Year
  Sex: Male
  Weight: 84 kg

DRUGS (1)
  1. TAMOXIFEN [Suspect]
     Active Substance: TAMOXIFEN
     Indication: Peyronie^s disease
     Dosage: 1 DOSAGE FORM, BID (ONE TABLET 2X DAILY)
     Route: 065
     Dates: start: 20231007, end: 20240228

REACTIONS (3)
  - Thrombosis [Recovering/Resolving]
  - Withdrawal syndrome [Recovering/Resolving]
  - Off label use [Unknown]
